FAERS Safety Report 7305023-0 (Version None)
Quarter: 2011Q1

REPORT INFORMATION
  Report Type: 
  Country: None (occurrence: None)
  Receive Date: 20110222
  Receipt Date: 20110217
  Transmission Date: 20110831
  Serious: Yes (Life-Threatening, Hospitalization)
  Sender: FDA-Public Use
  Company Number: IT-SANOFI-AVENTIS-2011SA010214

PATIENT
  Age: 59 Year
  Sex: Female

DRUGS (7)
  1. MEDROL [Concomitant]
     Route: 048
     Dates: start: 20001008, end: 20110204
  2. BISOPROLOL [Concomitant]
     Route: 048
     Dates: start: 20060101, end: 20110214
  3. ENBREL [Suspect]
     Indication: RHEUMATOID ARTHRITIS
     Route: 058
     Dates: start: 20070701, end: 20110206
  4. ARAVA [Suspect]
     Indication: RHEUMATOID ARTHRITIS
     Route: 048
     Dates: start: 20100601, end: 20110206
  5. COLECALCIFEROL [Concomitant]
     Indication: OSTEOPOROSIS
     Route: 065
     Dates: start: 20100301, end: 20110206
  6. ACTONEL [Concomitant]
     Indication: OSTEOPOROSIS
     Route: 048
     Dates: start: 20100301, end: 20110206
  7. BRUFEN ^ABBOTT^ [Concomitant]
     Route: 048
     Dates: start: 20100601, end: 20110206

REACTIONS (2)
  - PERICARDIAL EFFUSION [None]
  - MYOCARDIAL INFARCTION [None]
